FAERS Safety Report 8172173-9 (Version None)
Quarter: 2012Q1

REPORT INFORMATION
  Report Type: 
  Country: None (occurrence: None)
  Receive Date: 20120228
  Receipt Date: 20120224
  Transmission Date: 20120608
  Serious: Yes (Death, Hospitalization)
  Sender: FDA-Public Use
  Company Number: BR-ASTRAZENECA-2012SE12967

PATIENT
  Age: 78 Year
  Sex: Male
  Weight: 50 kg

DRUGS (1)
  1. BRILINTA [Suspect]
     Indication: CARDIAC INFECTION
     Route: 048
     Dates: start: 20111201

REACTIONS (3)
  - PNEUMONIA [None]
  - DYSPNOEA [None]
  - RESPIRATORY FAILURE [None]
